FAERS Safety Report 4556235-0 (Version None)
Quarter: 2005Q1

REPORT INFORMATION
  Report Type: 
  Country: None (occurrence: None)
  Receive Date: 20050119
  Receipt Date: 20041108
  Transmission Date: 20050727
  Serious: Yes (Hospitalization, Disabling)
  Sender: FDA-Public Use
  Company Number: US-MERCK-0411USA01455

PATIENT
  Age: 64 Year
  Sex: Male

DRUGS (3)
  1. VIOXX [Suspect]
     Indication: ARTHRITIS
     Route: 048
  2. NEURONTIN [Concomitant]
     Route: 065
  3. PERCOCET [Concomitant]
     Route: 065

REACTIONS (1)
  - CEREBROVASCULAR ACCIDENT [None]
